FAERS Safety Report 8689266 (Version 2)
Quarter: 2012Q4

REPORT INFORMATION
  Report Type: 
  Country: US (occurrence: US)
  Receive Date: 20120727
  Receipt Date: 20121227
  Transmission Date: 20130627
  Serious: No
  Sender: FDA-Public Use
  Company Number: US-ASTRAZENECA-2011SE75612

PATIENT
  Age: 71 Year
  Sex: Female
  Weight: 68 kg

DRUGS (17)
  1. NEXIUM [Suspect]
     Indication: GASTROOESOPHAGEAL REFLUX DISEASE
     Route: 048
  2. TEGRETOL [Suspect]
     Route: 048
  3. SEROQUEL [Suspect]
     Indication: BIPOLAR DISORDER
     Route: 048
  4. SEROQUEL [Suspect]
     Indication: ANXIETY
     Route: 048
  5. SEROQUEL [Suspect]
     Indication: DEPRESSION
     Route: 048
  6. SEROQUEL [Suspect]
     Indication: BIPOLAR DISORDER
     Route: 048
  7. SEROQUEL [Suspect]
     Indication: ANXIETY
     Route: 048
  8. SEROQUEL [Suspect]
     Indication: DEPRESSION
     Route: 048
  9. FLU SHOT [Suspect]
     Indication: INFLUENZA
     Route: 065
  10. KLONOPIN [Concomitant]
     Indication: ANXIETY
     Route: 048
  11. LAMICTAL [Concomitant]
     Indication: MOOD SWINGS
     Route: 048
  12. LEVOTHYROXINE [Concomitant]
     Indication: THYROID DISORDER
     Route: 048
  13. MIRALAX [Concomitant]
     Indication: CONSTIPATION
     Dosage: AT NIGHT
     Dates: start: 20121101
  14. THERM VITAMINS [Concomitant]
     Route: 048
  15. ZYPREXA [Concomitant]
     Route: 048
  16. OXYBUTIN [Concomitant]
     Dosage: DAILY
     Route: 048
  17. FORTEO [Concomitant]
     Indication: ARTHROPATHY
     Dosage: DAILY
     Route: 058
     Dates: start: 2012

REACTIONS (10)
  - Coeliac disease [Unknown]
  - Constipation [Unknown]
  - Drug hypersensitivity [Unknown]
  - Euphoric mood [Unknown]
  - Gastrooesophageal reflux disease [Unknown]
  - Influenza [Unknown]
  - Malaise [Unknown]
  - Memory impairment [Unknown]
  - Pain [Unknown]
  - Weight increased [Unknown]
